FAERS Safety Report 24253750 (Version 1)
Quarter: 2024Q3

REPORT INFORMATION
  Report Type: Spontaneous
  Country: EG (occurrence: EG)
  Receive Date: 20240827
  Receipt Date: 20240827
  Transmission Date: 20241017
  Serious: Yes (Other)
  Sender: MERCK
  Company Number: EG-009507513-2408EGY006990

PATIENT
  Age: 26 Year
  Sex: Female
  Weight: 80 kg

DRUGS (1)
  1. IMIPENEM AND CILASTATIN [Suspect]
     Active Substance: CILASTATIN SODIUM\IMIPENEM
     Indication: Postoperative wound infection
     Dosage: 500 MILLIGRAM, Q6H
     Route: 042
     Dates: start: 20240731, end: 20240803

REACTIONS (3)
  - Imminent abortion [Recovered/Resolved with Sequelae]
  - Uterine contractions during pregnancy [Recovered/Resolved with Sequelae]
  - Cervix enlargement [Recovered/Resolved with Sequelae]

NARRATIVE: CASE EVENT DATE: 20240803
